FAERS Safety Report 10105900 (Version 2)
Quarter: 2014Q2

REPORT INFORMATION
  Report Type: Other
  Country: US (occurrence: US)
  Receive Date: 20140424
  Receipt Date: 20140626
  Transmission Date: 20141212
  Serious: Yes (Hospitalization, Other)
  Sender: FDA-Public Use
  Company Number: US-GSKPPD-2014GSK000846

PATIENT
  Age: 51 Year
  Sex: Male

DRUGS (6)
  1. AVANDIA [Suspect]
     Indication: DIABETES MELLITUS
     Route: 048
     Dates: start: 2001, end: 2004
  2. AVANDAMET [Suspect]
     Indication: DIABETES MELLITUS
     Dosage: 4/500MG
     Route: 048
     Dates: start: 2004
  3. NORVASC [Concomitant]
  4. LIPITOR [Concomitant]
  5. ALTACE [Concomitant]
  6. ATENOLOL [Concomitant]

REACTIONS (3)
  - Myocardial infarction [Unknown]
  - Coronary artery disease [Recovered/Resolved]
  - Myocardial infarction [Recovered/Resolved]
